FAERS Safety Report 23209946 (Version 1)
Quarter: 2023Q4

REPORT INFORMATION
  Report Type: Spontaneous
  Country: CN (occurrence: CN)
  Receive Date: 20231121
  Receipt Date: 20231121
  Transmission Date: 20240109
  Serious: Yes (Other)
  Sender: FDA-Public Use
  Company Number: CN-009507513-2311CHN006687

PATIENT
  Age: 64 Year
  Sex: Male
  Weight: 60 kg

DRUGS (9)
  1. DAPTOMYCIN [Suspect]
     Active Substance: DAPTOMYCIN
     Indication: Endocarditis staphylococcal
     Dosage: 0.5 GRAM, ONCE DAILY
  2. DAPTOMYCIN [Suspect]
     Active Substance: DAPTOMYCIN
     Indication: Pneumonia
     Dosage: UNK
  3. VANCOMYCIN [Suspect]
     Active Substance: VANCOMYCIN
     Indication: Endocarditis staphylococcal
     Dosage: UNK
  4. VANCOMYCIN [Suspect]
     Active Substance: VANCOMYCIN
     Indication: Pneumonia
  5. MEROPENEM [Suspect]
     Active Substance: MEROPENEM
     Indication: Endocarditis staphylococcal
     Dosage: UNK
  6. MEROPENEM [Suspect]
     Active Substance: MEROPENEM
     Indication: Pneumonia
  7. VANCOMYCIN [Concomitant]
     Active Substance: VANCOMYCIN
     Indication: Staphylococcal infection
     Dosage: UNK
  8. LINEZOLID [Concomitant]
     Active Substance: LINEZOLID
     Indication: Staphylococcal infection
  9. MEROPENEM [Concomitant]
     Active Substance: MEROPENEM
     Indication: Staphylococcal infection

REACTIONS (4)
  - Gastrointestinal haemorrhage [Recovered/Resolved]
  - Coagulation test abnormal [Recovered/Resolved]
  - Hepatic function abnormal [Recovered/Resolved]
  - Off label use [Unknown]
